FAERS Safety Report 11446765 (Version 1)
Quarter: 2015Q3

REPORT INFORMATION
  Report Type: Spontaneous
  Country: US (occurrence: US)
  Receive Date: 20150902
  Receipt Date: 20150902
  Transmission Date: 20151125
  Serious: No
  Sender: FDA-Public Use
  Company Number: US-BAYER-2015-407606

PATIENT
  Age: 82 Year
  Sex: Male
  Weight: 63.39 kg

DRUGS (9)
  1. ACETYLSALICYLIC ACID(}100 MG) [Concomitant]
     Active Substance: ASPIRIN
     Dosage: 1 DF, QD
  2. AMLODIPINE [Concomitant]
     Active Substance: AMLODIPINE BESYLATE
  3. LORAZEPAM. [Concomitant]
     Active Substance: LORAZEPAM
  4. MIRALAX [Suspect]
     Active Substance: POLYETHYLENE GLYCOL 3350
     Indication: CONSTIPATION
     Dosage: 1 DF, QD
     Route: 048
     Dates: start: 201507
  5. CRESTOR [Concomitant]
     Active Substance: ROSUVASTATIN CALCIUM
  6. MIRALAX [Suspect]
     Active Substance: POLYETHYLENE GLYCOL 3350
     Indication: CONSTIPATION
     Dosage: 1 DF, PRN
     Route: 048
     Dates: start: 2014
  7. VITAMIN D [Concomitant]
     Active Substance: CHOLECALCIFEROL
     Dosage: 1 DF, QD
  8. CLOPIDOGREL [Concomitant]
     Active Substance: CLOPIDOGREL BISULFATE
  9. FISH OIL [Concomitant]
     Active Substance: FISH OIL
     Dosage: 2 DF, QD

REACTIONS (3)
  - Weight decreased [Not Recovered/Not Resolved]
  - Decreased appetite [Not Recovered/Not Resolved]
  - Product use issue [Not Recovered/Not Resolved]

NARRATIVE: CASE EVENT DATE: 201507
